FAERS Safety Report 12487079 (Version 2)
Quarter: 2016Q2

REPORT INFORMATION
  Report Type: Spontaneous
  Country: US (occurrence: US)
  Receive Date: 20160622
  Receipt Date: 20160628
  Transmission Date: 20160815
  Serious: Yes (Hospitalization, Other)
  Sender: FDA-Public Use
  Company Number: US-RELYPSA-RLY2016001029

PATIENT

DRUGS (21)
  1. CLOPIDOGREL BISULFATE. [Concomitant]
     Active Substance: CLOPIDOGREL BISULFATE
  2. HUMALOG [Concomitant]
     Active Substance: INSULIN LISPRO
  3. RENVELA [Concomitant]
     Active Substance: SEVELAMER CARBONATE
  4. ZETIA [Concomitant]
     Active Substance: EZETIMIBE
  5. IRBESARTAN. [Concomitant]
     Active Substance: IRBESARTAN
  6. LANTUS [Concomitant]
     Active Substance: INSULIN GLARGINE
  7. MULTIVITAMINS [Concomitant]
     Active Substance: VITAMINS
  8. METOLAZONE. [Concomitant]
     Active Substance: METOLAZONE
  9. REQUIP [Concomitant]
     Active Substance: ROPINIROLE HYDROCHLORIDE
  10. VITAMIN D3 [Concomitant]
     Active Substance: CHOLECALCIFEROL
  11. ATORVASTATIN CALCIUM. [Concomitant]
     Active Substance: ATORVASTATIN CALCIUM
  12. OMEGA 3                            /01333901/ [Concomitant]
     Active Substance: FISH OIL\TOCOPHEROL
  13. VELTASSA [Suspect]
     Active Substance: PATIROMER
     Indication: HYPERKALAEMIA
     Dosage: 8.4 G, QD
     Route: 048
     Dates: start: 20160430
  14. OXYCODONE W/APAP [Concomitant]
     Active Substance: ACETAMINOPHEN\OXYCODONE HYDROCHLORIDE
  15. GABAPENTIN. [Concomitant]
     Active Substance: GABAPENTIN
  16. LYRICA [Concomitant]
     Active Substance: PREGABALIN
  17. ONDANSETRON HCL [Concomitant]
     Active Substance: ONDANSETRON HYDROCHLORIDE
  18. SYMBICORT [Concomitant]
     Active Substance: BUDESONIDE\FORMOTEROL FUMARATE DIHYDRATE
  19. ASPIRIN                            /00002701/ [Concomitant]
     Active Substance: ASPIRIN
  20. BUMETANIDE. [Concomitant]
     Active Substance: BUMETANIDE
  21. MIDODRINE HCL [Concomitant]
     Active Substance: MIDODRINE HYDROCHLORIDE

REACTIONS (2)
  - Urinary tract infection [Unknown]
  - Lower limb fracture [Unknown]

NARRATIVE: CASE EVENT DATE: 20160610
